FAERS Safety Report 10502726 (Version 5)
Quarter: 2015Q2

REPORT INFORMATION
  Report Type: Spontaneous
  Country: FR (occurrence: FR)
  Receive Date: 20141007
  Receipt Date: 20150626
  Transmission Date: 20150821
  Serious: Yes (Other)
  Sender: FDA-Public Use
  Company Number: FR-UCBSA-2014013332

PATIENT
  Age: 24 Year
  Sex: Female

DRUGS (4)
  1. LAMICTAL [Concomitant]
     Active Substance: LAMOTRIGINE
     Dosage: PROGRESSIVE DECREASE
     Dates: start: 201306, end: 201311
  2. KEPPRA [Suspect]
     Active Substance: LEVETIRACETAM
     Indication: IDIOPATHIC GENERALISED EPILEPSY
     Dosage: UNKNOWN
     Route: 048
     Dates: start: 201305, end: 2013
  3. LAMICTAL [Concomitant]
     Active Substance: LAMOTRIGINE
     Indication: PRODUCT USED FOR UNKNOWN INDICATION
     Dosage: 300MG
     Dates: start: 201304, end: 2013
  4. KEPPRA [Suspect]
     Active Substance: LEVETIRACETAM
     Dosage: 1 G, 2X/DAY (BID)
     Route: 048
     Dates: start: 201306, end: 2014

REACTIONS (4)
  - Irritability [Unknown]
  - Neologism [Not Recovered/Not Resolved]
  - Delirium [Recovered/Resolved]
  - Emotional disorder [Unknown]

NARRATIVE: CASE EVENT DATE: 201305
